FAERS Safety Report 4709852-9 (Version None)
Quarter: 2005Q3

REPORT INFORMATION
  Report Type: 
  Country: None (occurrence: None)
  Receive Date: 20050708
  Receipt Date: 20050624
  Transmission Date: 20060218
  Serious: Yes (Other)
  Sender: FDA-Public Use
  Company Number: DE-JNJFOC-20050606818

PATIENT
  Age: 17 Year
  Sex: Male

DRUGS (13)
  1. HALDOL [Suspect]
     Route: 030
  2. HALDOL [Suspect]
     Route: 030
  3. HALDOL [Suspect]
     Route: 030
  4. HALOPERIDOL DECANOATE [Suspect]
     Route: 030
  5. HALOPERIDOL DECANOATE [Suspect]
     Route: 030
  6. RISPERDAL [Suspect]
     Dosage: PATIENT RECEIVED BETWEEN 2 AND 4 MG
     Route: 049
  7. RISPERDAL [Suspect]
     Route: 049
  8. RISPERDAL [Suspect]
     Route: 049
  9. HALDOL [Concomitant]
     Dosage: 5 TO 10MG  AS NEEDED.
     Route: 049
  10. HALDOL [Concomitant]
     Route: 049
  11. TEGRETOL [Concomitant]
     Route: 049
  12. EUNERPAN [Concomitant]
     Route: 049
  13. AKINETON [Concomitant]
     Route: 049

REACTIONS (3)
  - MUSCLE SPASMS [None]
  - OCULOGYRATION [None]
  - OROPHARYNGEAL SPASM [None]
